FAERS Safety Report 6870815-9 (Version None)
Quarter: 2010Q3

REPORT INFORMATION
  Report Type: 
  Country: None (occurrence: None)
  Receive Date: 20100723
  Receipt Date: 20100713
  Transmission Date: 20110219
  Serious: Yes (Hospitalization)
  Sender: FDA-Public Use
  Company Number: JP-MPIJNJ-2010-03584

PATIENT

DRUGS (35)
  1. VELCADE [Suspect]
     Indication: MULTIPLE MYELOMA
     Dosage: 1.76 MG, UNK
     Route: 042
     Dates: start: 20090904, end: 20091005
  2. VELCADE [Suspect]
     Dosage: 1.74 MG, UNK
     Route: 042
     Dates: start: 20091106, end: 20091204
  3. VELCADE [Suspect]
     Dosage: 1.33 MG, UNK
     Route: 042
     Dates: start: 20091221, end: 20100519
  4. VELCADE [Suspect]
     Dosage: 1.32 MG, UNK
     Route: 042
     Dates: start: 20100602, end: 20100623
  5. MELPHALAN [Suspect]
     Indication: MULTIPLE MYELOMA
     Dosage: 12 MG, UNK
     Dates: start: 20090904, end: 20100605
  6. PREDNISONE TAB [Suspect]
     Indication: MULTIPLE MYELOMA
     Dosage: 80 MG, UNK
     Route: 048
     Dates: start: 20090904, end: 20090907
  7. PREDNISONE TAB [Suspect]
     Dosage: 40 MG, UNK
     Route: 048
     Dates: start: 20090908, end: 20090908
  8. PREDNISONE TAB [Suspect]
     Dosage: 20 MG, UNK
     Dates: start: 20090909, end: 20090909
  9. PREDNISONE TAB [Suspect]
     Dosage: 10 MG, UNK
     Route: 048
     Dates: start: 20090910, end: 20090910
  10. PREDNISONE TAB [Suspect]
     Dosage: 80 MG, UNK
     Route: 048
     Dates: start: 20091106, end: 20091109
  11. PREDNISONE TAB [Suspect]
     Dosage: 40 MG, UNK
     Route: 048
     Dates: start: 20091110, end: 20091110
  12. PREDNISONE TAB [Suspect]
     Dosage: 20 MG, UNK
     Route: 048
     Dates: start: 20091111, end: 20091111
  13. PREDNISONE TAB [Suspect]
     Dosage: 10 MG, UNK
     Route: 048
     Dates: start: 20091112, end: 20091112
  14. PREDNISONE TAB [Suspect]
     Dosage: 80 MG, UNK
     Route: 048
     Dates: start: 20091221, end: 20091224
  15. PREDNISONE TAB [Suspect]
     Dosage: 40 MG, UNK
     Route: 048
     Dates: start: 20091225, end: 20091225
  16. PREDNISONE TAB [Suspect]
     Dosage: 20 MG, UNK
     Route: 048
     Dates: start: 20091226, end: 20091226
  17. PREDNISONE TAB [Suspect]
     Dosage: 10 MG, UNK
     Route: 048
     Dates: start: 20091227, end: 20091227
  18. PREDNISONE TAB [Suspect]
     Dosage: 80 MG, UNK
     Route: 048
     Dates: start: 20100201, end: 20100204
  19. PREDNISONE TAB [Suspect]
     Dosage: 40 MG, UNK
     Route: 048
     Dates: start: 20100205, end: 20100205
  20. PREDNISONE TAB [Suspect]
     Dosage: 20 MG, UNK
     Route: 048
     Dates: start: 20100206, end: 20100206
  21. PREDNISONE TAB [Suspect]
     Dosage: 10 MG, UNK
     Route: 048
     Dates: start: 20100207, end: 20100210
  22. PREDNISONE TAB [Suspect]
     Dosage: 80 MG, UNK
     Route: 048
     Dates: start: 20100317, end: 20100320
  23. PREDNISONE TAB [Suspect]
     Dosage: 40 MG, UNK
     Route: 048
     Dates: start: 20100321, end: 20100321
  24. PREDNISONE TAB [Suspect]
     Dosage: 20 MG, UNK
     Route: 048
     Dates: start: 20100322, end: 20100322
  25. PREDNISONE TAB [Suspect]
     Dosage: 10 MG, UNK
     Route: 048
     Dates: start: 20100323, end: 20100326
  26. PREDNISONE TAB [Suspect]
     Dosage: 60 MG, UNK
     Route: 048
     Dates: start: 20100421, end: 20100424
  27. PREDNISONE TAB [Suspect]
     Dosage: 60 MG, UNK
     Route: 048
     Dates: start: 20100602, end: 20100605
  28. AMLODIPINE BESYLATE [Concomitant]
     Indication: HYPERTENSION
     Dosage: 5 MG, UNK
     Route: 048
  29. ACYCLOVIR [Concomitant]
     Indication: PROPHYLAXIS
     Dosage: 200 MG, UNK
     Route: 048
     Dates: start: 20090911
  30. MAGNESIUM OXIDE [Concomitant]
     Indication: CONSTIPATION
     Dosage: 0.5 G, UNK
     Route: 048
     Dates: start: 20090911
  31. MYSLEE [Concomitant]
     Indication: INSOMNIA
     Dosage: 5 MG, UNK
     Route: 048
     Dates: start: 20090902
  32. LANDSEN [Concomitant]
     Indication: NEUROPATHY PERIPHERAL
     Dosage: 0.5 MG, UNK
     Route: 048
     Dates: start: 20100118
  33. TRUSOPT [Concomitant]
     Indication: GLAUCOMA
     Route: 047
  34. XALATAN [Concomitant]
     Indication: GLAUCOMA
     Route: 047
  35. ADOFEED [Concomitant]
     Indication: TRIGGER FINGER
     Dosage: UNK
     Route: 062
     Dates: start: 20100625, end: 20100709

REACTIONS (1)
  - CATARACT [None]
